FAERS Safety Report 9501356 (Version 2)
Quarter: 2013Q3

REPORT INFORMATION
  Report Type: Report from Study
  Country: JP (occurrence: JP)
  Receive Date: 20130905
  Receipt Date: 20130905
  Transmission Date: 20140515
  Serious: Yes (Death)
  Sender: FDA-Public Use
  Company Number: JP-JNJFOC-20130703631

PATIENT
  Sex: Female
  Weight: 38 kg

DRUGS (12)
  1. ONEDURO [Suspect]
     Indication: CANCER PAIN
     Route: 062
     Dates: start: 20130208, end: 20130227
  2. OPSO [Concomitant]
     Indication: CANCER PAIN
     Dosage: RESCUE DOSE
     Route: 048
     Dates: start: 20130214, end: 20130214
  3. OPSO [Concomitant]
     Indication: CANCER PAIN
     Dosage: RESCUE DOSE
     Route: 048
     Dates: start: 20130212, end: 20130213
  4. OPSO [Concomitant]
     Indication: CANCER PAIN
     Dosage: RESCUE DOSE
     Route: 048
     Dates: start: 20130209, end: 20130211
  5. OPSO [Concomitant]
     Indication: CANCER PAIN
     Dosage: RESCUE DOSE
     Route: 048
     Dates: start: 20130216, end: 20130216
  6. OPSO [Concomitant]
     Indication: CANCER PAIN
     Dosage: RESCUE DOSE
     Route: 048
     Dates: start: 20130217, end: 20130217
  7. OPSO [Concomitant]
     Indication: CANCER PAIN
     Dosage: RESCUE DOSE
     Route: 048
     Dates: start: 20130218, end: 20130220
  8. OPSO [Concomitant]
     Indication: CANCER PAIN
     Dosage: RESCUE DOSE
     Route: 048
     Dates: start: 20130215, end: 20130215
  9. LOXONIN [Concomitant]
     Indication: CANCER PAIN
     Route: 048
     Dates: end: 20130221
  10. TAKEPRON [Concomitant]
     Indication: PROPHYLAXIS
     Route: 048
     Dates: end: 20130221
  11. NOVAMIN [Concomitant]
     Indication: PROPHYLAXIS
     Route: 048
     Dates: start: 20130209, end: 20130213
  12. MAGMITT [Concomitant]
     Indication: PROPHYLAXIS
     Route: 048
     Dates: end: 20130221

REACTIONS (2)
  - Breast cancer [Fatal]
  - Drug intolerance [Unknown]
